FAERS Safety Report 4329228-6 (Version None)
Quarter: 2004Q1

REPORT INFORMATION
  Report Type: 
  Country: None (occurrence: None)
  Receive Date: 20040319
  Receipt Date: 20040218
  Transmission Date: 20041129
  Serious: No
  Sender: FDA-Public Use
  Company Number: US-JNJFOC-20040204659

PATIENT
  Age: 17 Year
  Sex: Female
  Weight: 61.2356 kg

DRUGS (2)
  1. ORTHO EVRA [Suspect]
     Indication: CONTRACEPTION
     Dosage: 1 DOSE(S), 3 IN 4 WEEK, TRANSDERMAL
     Route: 062
     Dates: start: 20040215, end: 20040216
  2. TYLENOL [Concomitant]

REACTIONS (2)
  - ABDOMINAL PAIN [None]
  - MUSCLE CRAMP [None]
